FAERS Safety Report 7371544-8 (Version None)
Quarter: 2011Q1

REPORT INFORMATION
  Report Type: 
  Country: None (occurrence: None)
  Receive Date: 20110324
  Receipt Date: 20110317
  Transmission Date: 20110831
  Serious: Yes (Hospitalization)
  Sender: FDA-Public Use
  Company Number: US-GILEAD-2011-0035097

PATIENT
  Sex: Female

DRUGS (6)
  1. ATENOLOL [Concomitant]
  2. ULTRACET [Concomitant]
  3. ASMANEX TWISTHALER [Concomitant]
  4. LETAIRIS [Suspect]
     Indication: PULMONARY HYPERTENSION
     Route: 048
     Dates: start: 20100625
  5. LETAIRIS [Suspect]
     Indication: VENTRICULAR SEPTAL DEFECT
  6. LORTAB [Concomitant]

REACTIONS (1)
  - PNEUMONIA [None]
